FAERS Safety Report 18130291 (Version 5)
Quarter: 2020Q4

REPORT INFORMATION
  Report Type: Spontaneous
  Country: JP (occurrence: JP)
  Receive Date: 20200810
  Receipt Date: 20201022
  Transmission Date: 20210113
  Serious: Yes (Death, Hospitalization, Other)
  Sender: FDA-Public Use
  Company Number: JP-AMGEN-JPNSP2020128303

PATIENT
  Age: 79 Year
  Sex: Male
  Weight: 51.8 kg

DRUGS (7)
  1. AMLODIPINE [Suspect]
     Active Substance: AMLODIPINE BESYLATE
     Indication: PRODUCT USED FOR UNKNOWN INDICATION
     Dosage: UNK
     Route: 065
  2. DEXART [Suspect]
     Active Substance: DEXAMETHASONE SODIUM PHOSPHATE
     Indication: ALLERGY PROPHYLAXIS
     Dosage: 6.6 MILLIGRAM, QD
     Route: 041
     Dates: start: 20200721, end: 20200721
  3. POLARAMINE [Suspect]
     Active Substance: DEXCHLORPHENIRAMINE MALEATE
     Indication: ALLERGY PROPHYLAXIS
     Dosage: 1 MILLILITER, QD
     Route: 041
     Dates: start: 20200721, end: 20200721
  4. MINOCYCLINE HYDROCHLORIDE. [Suspect]
     Active Substance: MINOCYCLINE HYDROCHLORIDE
     Indication: PRODUCT USED FOR UNKNOWN INDICATION
     Dosage: UNK
     Route: 065
  5. GOSHAJINKIGAN [Suspect]
     Active Substance: HERBALS
     Indication: PRODUCT USED FOR UNKNOWN INDICATION
     Dosage: UNK
     Route: 065
     Dates: start: 20200721
  6. HIRUDOID [Suspect]
     Active Substance: GLYCOSAMINOGLYCANS
     Indication: PRODUCT USED FOR UNKNOWN INDICATION
     Dosage: UNK
     Route: 065
  7. VECTIBIX [Suspect]
     Active Substance: PANITUMUMAB
     Indication: RECTAL CANCER STAGE IV
     Dosage: 310 MILLIGRAM
     Route: 041
     Dates: start: 20200721, end: 20200721

REACTIONS (9)
  - General physical health deterioration [Fatal]
  - Acute kidney injury [Unknown]
  - Chest pain [Fatal]
  - Dyspnoea [Fatal]
  - Cardiac arrest [Fatal]
  - Depressed level of consciousness [Recovered/Resolved]
  - Dehydration [Fatal]
  - Blood lactate dehydrogenase increased [Unknown]
  - Blood creatine phosphokinase increased [Unknown]

NARRATIVE: CASE EVENT DATE: 20200722
